FAERS Safety Report 7321391-8 (Version None)
Quarter: 2011Q1

REPORT INFORMATION
  Report Type: 
  Country: None (occurrence: None)
  Receive Date: 20110216
  Receipt Date: 20110202
  Transmission Date: 20110831
  Serious: Yes (Death, Hospitalization)
  Sender: FDA-Public Use
  Company Number: 2011MA001052

PATIENT
  Age: 39 Year

DRUGS (2)
  1. VERAPAMIL HYDROCHLORIDE [Suspect]
     Indication: PRODUCT USED FOR UNKNOWN INDICATION
     Dosage: 7.2 G
  2. SOTALOL SOTALOL) [Suspect]
     Dosage: 4.8 G

REACTIONS (13)
  - RENAL FAILURE ACUTE [None]
  - SEPTIC SHOCK [None]
  - CATHETER SITE HAEMORRHAGE [None]
  - OVERDOSE [None]
  - CONTINUOUS HAEMODIAFILTRATION [None]
  - BRAIN DEATH [None]
  - SHOCK [None]
  - CARDIAC ARREST [None]
  - CARDIOGENIC SHOCK [None]
  - VENA CAVA THROMBOSIS [None]
  - PERIPHERAL ISCHAEMIA [None]
  - ARTERIAL THROMBOSIS LIMB [None]
  - COMA [None]
